FAERS Safety Report 6216045-5 (Version None)
Quarter: 2009Q2

REPORT INFORMATION
  Report Type: 
  Country: None (occurrence: None)
  Receive Date: 20090605
  Receipt Date: 20090527
  Transmission Date: 20091009
  Serious: Yes (Other)
  Sender: FDA-Public Use
  Company Number: PHEH2009US05387

PATIENT
  Sex: Male

DRUGS (1)
  1. EXJADE [Suspect]
     Dosage: 1750 MG, QD
     Route: 048
     Dates: start: 20090505, end: 20090527

REACTIONS (5)
  - BLISTER [None]
  - CELLULITIS [None]
  - FLUID RETENTION [None]
  - HAEMORRHAGE [None]
  - JOINT SWELLING [None]
